FAERS Safety Report 6623988-7 (Version None)
Quarter: 2010Q1

REPORT INFORMATION
  Report Type: 
  Country: None (occurrence: None)
  Receive Date: 20100310
  Receipt Date: 20100225
  Transmission Date: 20100710
  Serious: Yes (Hospitalization, Other)
  Sender: FDA-Public Use
  Company Number: IT-PFIZER INC-2010006467

PATIENT
  Age: 32 Year
  Sex: Male

DRUGS (1)
  1. ZELDOX [Suspect]
     Indication: SCHIZOAFFECTIVE DISORDER
     Dosage: 40 MG, 2X/DAY
     Route: 048
     Dates: start: 20091203, end: 20091204

REACTIONS (4)
  - FALL [None]
  - GRAND MAL CONVULSION [None]
  - JOINT DISLOCATION [None]
  - UPPER LIMB FRACTURE [None]
